FAERS Safety Report 14024146 (Version 3)
Quarter: 2019Q2

REPORT INFORMATION
  Report Type: Spontaneous
  Country: US (occurrence: US)
  Receive Date: 20170928
  Receipt Date: 20190412
  Transmission Date: 20190711
  Serious: No
  Sender: FDA-Public Use
  Company Number: US-SA-2017SA038608

PATIENT
  Age: 54 Year
  Sex: Female
  Weight: 80.7 kg

DRUGS (8)
  1. AUBAGIO [Suspect]
     Active Substance: TERIFLUNOMIDE
     Indication: MULTIPLE SCLEROSIS
     Dosage: 14 MG,QD
     Route: 048
     Dates: start: 2016, end: 20160918
  2. AUBAGIO [Suspect]
     Active Substance: TERIFLUNOMIDE
     Dosage: 14 MG,QD
     Route: 048
     Dates: start: 20170113
  3. ROPINIROLE. [Concomitant]
     Active Substance: ROPINIROLE
     Dosage: UNK
     Dates: start: 201609, end: 201612
  4. BACLOFEN. [Concomitant]
     Active Substance: BACLOFEN
     Indication: RESTLESS LEGS SYNDROME
     Dosage: 20 MG,UNK
  5. NORCO [Concomitant]
     Active Substance: ACETAMINOPHEN\HYDROCODONE BITARTRATE
     Indication: PAIN
     Dosage: 10-325 MG
  6. OXYCODONE [Concomitant]
     Active Substance: OXYCODONE
     Indication: PAIN
     Dosage: 10 MG,UNK
  7. PROVIGIL [Concomitant]
     Active Substance: MODAFINIL
     Indication: MULTIPLE SCLEROSIS
     Dosage: 100 MG,UNK
     Dates: start: 20170321
  8. VALIUM [Concomitant]
     Active Substance: DIAZEPAM
     Indication: NERVOUS SYSTEM DISORDER
     Dosage: 5 MG,PRN

REACTIONS (10)
  - Rash [Unknown]
  - Depressed mood [Not Recovered/Not Resolved]
  - Rash pruritic [Unknown]
  - Myalgia [Unknown]
  - Dyspnoea [Recovered/Resolved]
  - Ulcer [Unknown]
  - Hypoaesthesia oral [Unknown]
  - Alopecia [Not Recovered/Not Resolved]
  - Scratch [Unknown]
  - Scab [Unknown]

NARRATIVE: CASE EVENT DATE: 2016
